FAERS Safety Report 6331014-2 (Version None)
Quarter: 2009Q3

REPORT INFORMATION
  Report Type: 
  Country: None (occurrence: None)
  Receive Date: 20090827
  Receipt Date: 20090821
  Transmission Date: 20100115
  Serious: Yes (Congenital Anomaly, Other)
  Sender: FDA-Public Use
  Company Number: A0794874A

PATIENT
  Age: 6 Year

DRUGS (3)
  1. FLOVENT [Suspect]
     Indication: ASTHMA
     Dosage: 100MCG TWICE PER DAY
     Route: 055
     Dates: start: 20080101, end: 20090624
  2. ZYRTEC [Concomitant]
  3. XOPENEX [Concomitant]
     Route: 055

REACTIONS (1)
  - SUPRAVENTRICULAR TACHYCARDIA [None]
